FAERS Safety Report 9915921 (Version 1)
Quarter: 2014Q1

REPORT INFORMATION
  Report Type: Spontaneous
  Country: US (occurrence: None)
  Receive Date: 20140219
  Receipt Date: 20140219
  Transmission Date: 20141002
  Serious: Yes (Life-Threatening)
  Sender: FDA-Public Use
  Company Number: None

PATIENT
  Age: 52 Year
  Sex: Female
  Weight: 63.5 kg

DRUGS (1)
  1. CYMBALTA [Suspect]
     Indication: DEPRESSION
     Dosage: 1 PILL
     Route: 048
     Dates: start: 20130902, end: 20140208

REACTIONS (8)
  - Drug withdrawal syndrome [None]
  - Somnolence [None]
  - Nausea [None]
  - Weight increased [None]
  - Asthenia [None]
  - Hyperhidrosis [None]
  - Hypertension [None]
  - Initial insomnia [None]
